FAERS Safety Report 7472389-0 (Version None)
Quarter: 2011Q2

REPORT INFORMATION
  Report Type: 
  Country: None (occurrence: None)
  Receive Date: 20110511
  Receipt Date: 20110504
  Transmission Date: 20111010
  Serious: Yes (Other)
  Sender: FDA-Public Use
  Company Number: PHHY2011IE32496

PATIENT
  Sex: Male

DRUGS (1)
  1. LAMISIL [Suspect]
     Indication: KERION
     Dosage: 250 MG, QD
     Route: 048
     Dates: start: 20110314, end: 20110402

REACTIONS (1)
  - SKIN HYPOPIGMENTATION [None]
